FAERS Safety Report 17938263 (Version 4)
Quarter: 2020Q3

REPORT INFORMATION
  Report Type: Spontaneous
  Country: DK (occurrence: DK)
  Receive Date: 20200624
  Receipt Date: 20200828
  Transmission Date: 20201103
  Serious: Yes (Other)
  Sender: FDA-Public Use
  Company Number: DK-GLAXOSMITHKLINE-DK2020108395

PATIENT
  Sex: Male

DRUGS (2)
  1. NICORETTE [Concomitant]
     Active Substance: NICOTINE
     Indication: SMOKING CESSATION THERAPY
     Dosage: DAILY USE OF 4?5 PIECES OFCHEWING GUM AND 2 INHALATORS
     Route: 065
     Dates: start: 2020
  2. NICORETTE [Suspect]
     Active Substance: NICOTINE
     Indication: SMOKING CESSATION THERAPY
     Dosage: 4?5 PIECES OF CHEWING GUM
     Route: 048
     Dates: start: 2020, end: 20200528

REACTIONS (1)
  - Tooth injury [Unknown]

NARRATIVE: CASE EVENT DATE: 2020
